FAERS Safety Report 8966672 (Version 1)
Quarter: 2012Q4

REPORT INFORMATION
  Report Type: 
  Country: CN (occurrence: CN)
  Receive Date: 20121214
  Receipt Date: 20121214
  Transmission Date: 20130627
  Serious: Yes (Other)
  Sender: FDA-Public Use
  Company Number: PHHY2012CN108790

PATIENT
  Sex: Female
  Weight: 37 kg

DRUGS (1)
  1. ZOLEDRONIC ACID [Suspect]
     Indication: ARRHYTHMIA
     Dosage: 100 ml, UNK
     Route: 042
     Dates: start: 20111118, end: 20111118

REACTIONS (3)
  - Hyperpyrexia [Recovering/Resolving]
  - Loss of consciousness [Recovering/Resolving]
  - Confusional state [Recovering/Resolving]
